FAERS Safety Report 6174009-4 (Version None)
Quarter: 2009Q2

REPORT INFORMATION
  Report Type: 
  Country: None (occurrence: None)
  Receive Date: 20090430
  Receipt Date: 20080812
  Transmission Date: 20091009
  Serious: No
  Sender: FDA-Public Use
  Company Number: US-ASTRAZENECA-2007UW21308

PATIENT
  Age: 69 Year
  Sex: Female
  Weight: 90.3 kg

DRUGS (4)
  1. NEXIUM [Suspect]
     Indication: OESOPHAGITIS
     Route: 048
     Dates: start: 20060901
  2. ALTOPREV [Concomitant]
  3. DIOVAN HD [Concomitant]
  4. VITAMIN B-12 [Concomitant]

REACTIONS (3)
  - NEUROPATHY PERIPHERAL [None]
  - PARAESTHESIA [None]
  - RASH [None]
